FAERS Safety Report 4830128-3 (Version None)
Quarter: 2005Q4

REPORT INFORMATION
  Report Type: 
  Country: None (occurrence: None)
  Receive Date: 20051114
  Receipt Date: 20051028
  Transmission Date: 20060501
  Serious: Yes (Other)
  Sender: FDA-Public Use
  Company Number: 2005BH002806

PATIENT
  Sex: Female

DRUGS (2)
  1. ANTICOAGULANT SODIUM CITRATE SOLUTION 250 ML [Suspect]
     Indication: PLASMAPHERESIS
     Dosage: ONCE; IV
     Route: 042
     Dates: start: 20051028, end: 20051028
  2. SODIUM CHLORIDE 0.9% [Suspect]
     Indication: PLASMAPHERESIS
     Dosage: ONCE; IV
     Route: 042
     Dates: start: 20051028, end: 20051028

REACTIONS (8)
  - ARTHRALGIA [None]
  - HAEMORRHAGE [None]
  - HEAD INJURY [None]
  - HUNGER [None]
  - MEDICAL DEVICE COMPLICATION [None]
  - MEMORY IMPAIRMENT [None]
  - PAIN IN EXTREMITY [None]
  - SYNCOPE [None]
